FAERS Safety Report 23772389 (Version 1)
Quarter: 2024Q2

REPORT INFORMATION
  Report Type: Spontaneous
  Country: US (occurrence: US)
  Receive Date: 20240423
  Receipt Date: 20240423
  Transmission Date: 20240716
  Serious: Yes (Other)
  Sender: FDA-Public Use
  Company Number: US-KOANAAP-SML-US-2024-00329

PATIENT
  Age: 62 Year
  Sex: Male

DRUGS (2)
  1. CAPECITABINE [Suspect]
     Active Substance: CAPECITABINE
     Indication: Adenocarcinoma of colon
  2. OXALIPLATIN [Suspect]
     Active Substance: OXALIPLATIN
     Indication: Adenocarcinoma of colon

REACTIONS (3)
  - Toxicity to various agents [Unknown]
  - Cardiogenic shock [Recovering/Resolving]
  - Cardiomyopathy [Recovering/Resolving]
